FAERS Safety Report 14068216 (Version 1)
Quarter: 2017Q4

REPORT INFORMATION
  Report Type: Spontaneous
  Country: FR (occurrence: FR)
  Receive Date: 20171010
  Receipt Date: 20171010
  Transmission Date: 20180321
  Serious: Yes (Life-Threatening, Hospitalization)
  Sender: FDA-Public Use
  Company Number: FR-ROCHE-2003326

PATIENT
  Age: 75 Year
  Sex: Male
  Weight: 85 kg

DRUGS (3)
  1. ALIMTA [Suspect]
     Active Substance: PEMETREXED DISODIUM
     Indication: LUNG ADENOCARCINOMA
     Dosage: MOST RECENT DOSE PRIOR TO AE 17/AUG/2017
     Route: 041
     Dates: start: 20170131
  2. CARBOPLATINE [Concomitant]
     Active Substance: CARBOPLATIN
     Indication: LUNG ADENOCARCINOMA
     Route: 042
     Dates: start: 20170131
  3. AVASTIN [Suspect]
     Active Substance: BEVACIZUMAB
     Indication: LUNG ADENOCARCINOMA
     Dosage: MOST RECENT DOSE PRIOR TO AE 17/AUG/2017
     Route: 042
     Dates: start: 20170131

REACTIONS (2)
  - Colitis ischaemic [Recovered/Resolved with Sequelae]
  - Large intestine perforation [Recovered/Resolved with Sequelae]

NARRATIVE: CASE EVENT DATE: 20170828
